FAERS Safety Report 10578060 (Version 2)
Quarter: 2014Q4

REPORT INFORMATION
  Report Type: Spontaneous
  Country: US (occurrence: US)
  Receive Date: 20141112
  Receipt Date: 20141112
  Transmission Date: 20150529
  Serious: Yes (Other)
  Sender: FDA-Public Use
  Company Number: US-AMGEN-USASP2014082820

PATIENT
  Age: 83 Year
  Sex: Female
  Weight: 71.66 kg

DRUGS (1)
  1. PROLIA [Suspect]
     Active Substance: DENOSUMAB
     Indication: OSTEOPOROSIS POSTMENOPAUSAL
     Dosage: UNK UNK, Q6MO
     Route: 030
     Dates: start: 20140721

REACTIONS (7)
  - Cardiac failure congestive [Unknown]
  - Pneumonia [Unknown]
  - Kidney infection [Unknown]
  - Incorrect route of drug administration [Unknown]
  - Fall [Unknown]
  - Dizziness [Unknown]
  - Vertigo [Not Recovered/Not Resolved]

NARRATIVE: CASE EVENT DATE: 201410
